FAERS Safety Report 8812470 (Version 2)
Quarter: 2012Q4

REPORT INFORMATION
  Report Type: 
  Country: US (occurrence: US)
  Receive Date: 20120927
  Receipt Date: 20121213
  Transmission Date: 20130627
  Serious: No
  Sender: FDA-Public Use
  Company Number: US-ASTRAZENECA-2012SE72062

PATIENT
  Age: 6 Year
  Sex: Female
  Weight: 23.6 kg

DRUGS (2)
  1. PULMICORT FLEXHALER [Suspect]
     Indication: ASTHMA
     Dosage: 18O MCG, 2 PUFFS BID
     Route: 055
     Dates: start: 201203
  2. OTC COLD MEDICINE [Concomitant]
     Indication: NASOPHARYNGITIS

REACTIONS (3)
  - Nasopharyngitis [Unknown]
  - Cough [Unknown]
  - Drug dose omission [Unknown]
